FAERS Safety Report 6300568-4 (Version None)
Quarter: 2009Q3

REPORT INFORMATION
  Report Type: 
  Country: None (occurrence: None)
  Receive Date: 20090806
  Receipt Date: 20090513
  Transmission Date: 20100115
  Serious: No
  Sender: FDA-Public Use
  Company Number: US-ABBOTT-09P-163-0573800-00

PATIENT
  Sex: Female
  Weight: 52.21 kg

DRUGS (6)
  1. DEPAKOTE ER [Suspect]
     Indication: MIGRAINE
     Route: 048
     Dates: start: 20090511
  2. AMITRIPTYLINE HCL [Suspect]
     Indication: MIGRAINE
     Route: 048
     Dates: start: 20090513
  3. AMITRIPTYLINE HCL [Suspect]
     Route: 048
     Dates: end: 20090511
  4. REGLAN [Concomitant]
     Indication: MIGRAINE
  5. FOSAMAX [Concomitant]
     Indication: OSTEOPOROSIS
  6. CIPROFLOXACIN HYDROCHLORIDE [Concomitant]
     Indication: CYST
     Route: 048
     Dates: start: 20090501

REACTIONS (2)
  - DRY MOUTH [None]
  - EXPIRED DRUG ADMINISTERED [None]
